FAERS Safety Report 9626189 (Version 1)
Quarter: 2013Q4

REPORT INFORMATION
  Report Type: Report from Study
  Country: CL (occurrence: CL)
  Receive Date: 20131016
  Receipt Date: 20131016
  Transmission Date: 20140711
  Serious: Yes (Other)
  Sender: FDA-Public Use
  Company Number: PHHY2013CL116074

PATIENT
  Sex: Female

DRUGS (1)
  1. TAREG [Suspect]
     Dosage: UNK UKN, UNK

REACTIONS (1)
  - Glaucoma [Unknown]
